FAERS Safety Report 13001296 (Version 3)
Quarter: 2018Q4

REPORT INFORMATION
  Report Type: Spontaneous
  Country: US (occurrence: US)
  Receive Date: 20161206
  Receipt Date: 20181114
  Transmission Date: 20190204
  Serious: No
  Sender: FDA-Public Use
  Company Number: US-PFIZER INC-2016561030

PATIENT
  Age: 51 Year
  Sex: Female

DRUGS (1)
  1. SERTRALINE HCL [Suspect]
     Active Substance: SERTRALINE HYDROCHLORIDE
     Dosage: UNK

REACTIONS (6)
  - Drug ineffective [Unknown]
  - Thinking abnormal [Unknown]
  - Malaise [Unknown]
  - Candida infection [Unknown]
  - Insomnia [Unknown]
  - Mobility decreased [Unknown]
